FAERS Safety Report 5977343-3 (Version None)
Quarter: 2008Q4

REPORT INFORMATION
  Report Type: 
  Country: None (occurrence: None)
  Receive Date: 20081201
  Receipt Date: 20081201
  Transmission Date: 20090506
  Serious: Yes (Other)
  Sender: FDA-Public Use
  Company Number: None

PATIENT
  Age: 55 Year
  Sex: Female
  Weight: 74.8435 kg

DRUGS (1)
  1. BONIVA [Suspect]
     Indication: OSTEOPENIA
     Dosage: 150MG 1 PER MONTH PO
     Route: 048
     Dates: start: 20081123, end: 20081123

REACTIONS (10)
  - ARTHRALGIA [None]
  - BLOOD IRON DECREASED [None]
  - CONDITION AGGRAVATED [None]
  - DYSPNOEA EXERTIONAL [None]
  - INSOMNIA [None]
  - MALAISE [None]
  - MYALGIA [None]
  - OSTEOARTHRITIS [None]
  - SWELLING [None]
  - SWELLING FACE [None]
